FAERS Safety Report 5324959-3 (Version None)
Quarter: 2007Q2

REPORT INFORMATION
  Report Type: 
  Country: None (occurrence: None)
  Receive Date: 20070515
  Receipt Date: 20070207
  Transmission Date: 20071010
  Serious: Yes (Hospitalization, Other)
  Sender: FDA-Public Use
  Company Number: US-BAYER-200610190BWH

PATIENT
  Age: 78 Year
  Sex: Female
  Weight: 55 kg

DRUGS (24)
  1. SORAFENIB [Suspect]
     Indication: METASTATIC RENAL CELL CARCINOMA
     Dosage: TOTAL DAILY DOSE: 800 MG  UNIT DOSE: 200 MG
     Route: 048
     Dates: start: 20051202
  2. COUMADIN [Interacting]
     Indication: PULMONARY EMBOLISM
     Route: 048
     Dates: start: 20060101
  3. PROTONIX [Concomitant]
     Indication: GASTROOESOPHAGEAL REFLUX DISEASE
     Route: 048
  4. DIOVAN [Concomitant]
     Indication: HYPERTENSION
     Route: 048
     Dates: start: 20020101
  5. LEVOTHYROXINE SODIUM [Concomitant]
     Indication: HYPOTHYROIDISM
     Route: 048
     Dates: start: 20050926
  6. COMPAZINE [Concomitant]
     Indication: NAUSEA
     Route: 048
     Dates: start: 20060106
  7. COMPAZINE [Concomitant]
     Route: 048
  8. VICODIN [Concomitant]
     Indication: PAIN
     Route: 048
     Dates: start: 20060101
  9. VICODIN [Concomitant]
  10. STOOL SOFTENER [Concomitant]
     Indication: CONSTIPATION
     Route: 048
     Dates: start: 20051201
  11. CALCIUM D [Concomitant]
     Indication: VITAMIN SUPPLEMENTATION
  12. AMBIEN CR [Concomitant]
     Indication: INSOMNIA
     Route: 048
     Dates: start: 20060107
  13. MEGACE [Concomitant]
     Indication: ANOREXIA
     Route: 048
     Dates: start: 20060106
  14. MULTI-VITAMIN [Concomitant]
     Indication: ROUTINE HEALTH MAINTENANCE
     Route: 048
     Dates: start: 20060503
  15. CARDIZEM CD [Concomitant]
     Indication: ARRHYTHMIA
     Route: 048
     Dates: start: 20060503
  16. ZOLOFT [Concomitant]
     Indication: DEPRESSION
     Route: 048
     Dates: start: 20060503
  17. OS-CAL WITH VITAMIN D [Concomitant]
     Indication: ROUTINE HEALTH MAINTENANCE
     Route: 048
     Dates: start: 20060503
  18. OS-CAL WITH VITAMIN D [Concomitant]
     Dosage: TOTAL DAILY DOSE: 500 MG  UNIT DOSE: 250 MG
     Route: 048
     Dates: start: 20060106
  19. LACTULOSE [Concomitant]
     Indication: CONSTIPATION
     Route: 048
     Dates: start: 20050101
  20. RESTORIL [Concomitant]
     Indication: INSOMNIA
     Route: 048
     Dates: start: 20060120
  21. ANTIVERT [Concomitant]
     Indication: VERTIGO
     Route: 048
     Dates: start: 20060101
  22. MILK OF MAGNESIA [Concomitant]
     Indication: CONSTIPATION
  23. ZESTRIL [Concomitant]
     Indication: HYPERTENSION
     Dates: start: 20060503
  24. SERZONE CD [Concomitant]
     Indication: TACHYCARDIA
     Dates: start: 20060503

REACTIONS (13)
  - BLOOD CHLORIDE DECREASED [None]
  - COAGULOPATHY [None]
  - FALL [None]
  - GASTROINTESTINAL HAEMORRHAGE [None]
  - HAEMATOCRIT DECREASED [None]
  - HAEMOGLOBIN DECREASED [None]
  - HAEMORRHOIDS [None]
  - HIP FRACTURE [None]
  - HYPOTENSION [None]
  - PLATELET COUNT DECREASED [None]
  - PULMONARY EMBOLISM [None]
  - SUPRAVENTRICULAR TACHYCARDIA [None]
  - SYNCOPE [None]
